FAERS Safety Report 9894647 (Version 2)
Quarter: 2014Q2

REPORT INFORMATION
  Report Type: Spontaneous
  Country: US (occurrence: US)
  Receive Date: 20140213
  Receipt Date: 20140414
  Transmission Date: 20141212
  Serious: No
  Sender: FDA-Public Use
  Company Number: US-009507513-1402USA003318

PATIENT
  Sex: Female

DRUGS (3)
  1. NASONEX [Suspect]
     Indication: SINUS CONGESTION
     Dosage: TWO SPRAYS EACH NOSTRIL DAILY, 1 STANDARD DOSE OF 17
     Route: 045
  2. NASONEX [Suspect]
     Indication: HYPERSENSITIVITY
     Dosage: AS NEEDED, 1 STANDARD DOSE OF 17
     Route: 045
  3. NASONEX [Suspect]
     Indication: EUSTACHIAN TUBE OBSTRUCTION

REACTIONS (5)
  - Dry eye [Recovered/Resolved]
  - Nasal dryness [Recovered/Resolved]
  - Product quality issue [Unknown]
  - Inappropriate schedule of drug administration [Unknown]
  - Hypersensitivity [Recovered/Resolved]
